FAERS Safety Report 24754408 (Version 2)
Quarter: 2024Q4

REPORT INFORMATION
  Report Type: Spontaneous
  Country: US (occurrence: US)
  Receive Date: 20241219
  Receipt Date: 20241230
  Transmission Date: 20250114
  Serious: Yes (Hospitalization)
  Sender: BIOVITRUM
  Company Number: US-BIOVITRUM-2024-US-016020

PATIENT
  Age: 6 Month
  Sex: Male

DRUGS (1)
  1. SYNAGIS [Suspect]
     Active Substance: PALIVIZUMAB
     Indication: Premature baby
     Dosage: EVERY 28 DAYS - 30 DAYS
     Route: 030
     Dates: start: 20240722

REACTIONS (4)
  - Cough [Unknown]
  - Sneezing [Unknown]
  - Ear infection [Unknown]
  - Device malfunction [Unknown]

NARRATIVE: CASE EVENT DATE: 20240901
